FAERS Safety Report 7790487-9 (Version None)
Quarter: 2011Q3

REPORT INFORMATION
  Report Type: 
  Country: None (occurrence: None)
  Receive Date: 20110930
  Receipt Date: 20110922
  Transmission Date: 20111222
  Serious: Yes (Other)
  Sender: FDA-Public Use
  Company Number: PHHY2011AU85510

PATIENT
  Sex: Female

DRUGS (2)
  1. ESTRADIOL [Suspect]
     Dosage: 50/140
     Route: 062
  2. ESTRADIOL [Suspect]
     Dosage: 50/140
     Route: 062

REACTIONS (7)
  - KNEE DEFORMITY [None]
  - ABNORMAL DREAMS [None]
  - PERIORBITAL HAEMATOMA [None]
  - APPLICATION SITE IRRITATION [None]
  - FALL [None]
  - APPLICATION SITE ERYTHEMA [None]
  - APPLICATION SITE PRURITUS [None]
